FAERS Safety Report 20310193 (Version 1)
Quarter: 2022Q1

REPORT INFORMATION
  Report Type: Spontaneous
  Country: IT (occurrence: IT)
  Receive Date: 20220107
  Receipt Date: 20220107
  Transmission Date: 20220424
  Serious: Yes (Hospitalization)
  Sender: FDA-Public Use
  Company Number: None

PATIENT
  Age: 75 Year
  Sex: Male
  Weight: 70 kg

DRUGS (2)
  1. PREDNISONE [Suspect]
     Active Substance: PREDNISONE
     Dosage: 25 MG
  2. HUMIRA [Suspect]
     Active Substance: ADALIMUMAB
     Dosage: HUMIRA 80 MG SOLUTION FOR INJECTION IN PRE-FILLED PEN

REACTIONS (2)
  - Encephalitis [Unknown]
  - Sepsis [Unknown]

NARRATIVE: CASE EVENT DATE: 20211217
